FAERS Safety Report 6126340-6 (Version None)
Quarter: 2009Q1

REPORT INFORMATION
  Report Type: 
  Country: None (occurrence: None)
  Receive Date: 20090320
  Receipt Date: 20090320
  Transmission Date: 20090719
  Serious: No
  Sender: FDA-Public Use
  Company Number: ZA-EISAI MEDICAL RESEARCH-E2020-04234-CLI-ZA

PATIENT
  Sex: Female
  Weight: 50 kg

DRUGS (1)
  1. DONEPEZIL HCL [Suspect]
     Indication: DEMENTIA ALZHEIMER'S TYPE
     Route: 048
     Dates: start: 20080916, end: 20090119

REACTIONS (1)
  - ELECTROCARDIOGRAM QT PROLONGED [None]
